FAERS Safety Report 9377476 (Version 4)
Quarter: 2014Q2

REPORT INFORMATION
  Report Type: Spontaneous
  Country: US (occurrence: US)
  Receive Date: 20130701
  Receipt Date: 20140604
  Transmission Date: 20141212
  Serious: No
  Sender: FDA-Public Use
  Company Number: US-PFIZER INC-2013192383

PATIENT
  Age: 62 Year
  Sex: Female
  Weight: 77.1 kg

DRUGS (1)
  1. PREMPRO [Suspect]
     Dosage: 0.625 / 2.5 MG, 1X/DAY
     Route: 048
     Dates: end: 201405

REACTIONS (6)
  - Agitation [Unknown]
  - Drug dose omission [Unknown]
  - Infection [Unknown]
  - Irritability [Unknown]
  - Malaise [Recovering/Resolving]
  - Nasopharyngitis [Recovering/Resolving]
